FAERS Safety Report 4801894-8 (Version None)
Quarter: 2005Q4

REPORT INFORMATION
  Report Type: 
  Country: None (occurrence: None)
  Receive Date: 20051014
  Receipt Date: 20051014
  Transmission Date: 20060501
  Serious: No
  Sender: FDA-Public Use
  Company Number: None

PATIENT
  Age: 51 Year
  Sex: Male
  Weight: 147.419 kg

DRUGS (2)
  1. VANCOMYCIN [Suspect]
     Indication: WOUND INFECTION STAPHYLOCOCCAL
     Dosage: 1.5 GM Q12H IV
     Route: 042
     Dates: start: 20050919, end: 20051013
  2. INVANZ [Suspect]
     Indication: WOUND INFECTION STAPHYLOCOCCAL
     Dosage: 1GM DAILY IV
     Route: 042
     Dates: start: 20050919, end: 20051013

REACTIONS (2)
  - SKIN EXFOLIATION [None]
  - TENDERNESS [None]
